FAERS Safety Report 8799687 (Version 1)
Quarter: 2012Q4

REPORT INFORMATION
  Report Type: 
  Country: AR (occurrence: AR)
  Receive Date: 20120919
  Receipt Date: 20120919
  Transmission Date: 20130627
  Serious: Yes (Hospitalization, Other)
  Sender: FDA-Public Use
  Company Number: AR-AMGEN-ARGSP2012058593

PATIENT
  Age: 52 Year
  Sex: Female
  Weight: 43 kg

DRUGS (7)
  1. ENBREL [Suspect]
     Indication: RHEUMATOID ARTHRITIS
     Dosage: 25 mg, 2x/week
     Route: 058
     Dates: start: 20061110, end: 20100826
  2. ALPRAZOLAM [Concomitant]
     Dosage: UNK
     Route: 065
  3. CALCIUM [Concomitant]
     Dosage: UNK
     Route: 065
  4. OXADISTEN                          /01366101/ [Concomitant]
     Dosage: UNK
     Route: 065
  5. FOLIC ACID [Concomitant]
     Dosage: UNK
     Route: 065
  6. METHOTREXATE [Concomitant]
     Dosage: UNK
     Route: 065
  7. OMEPRAZOLE [Concomitant]
     Dosage: UNK
     Route: 065

REACTIONS (8)
  - Rheumatoid arthritis [Recovered/Resolved]
  - Pulmonary fibrosis [Not Recovered/Not Resolved]
  - Breast calcifications [Recovered/Resolved]
  - White blood cell count increased [Recovering/Resolving]
  - Breast cyst [Not Recovered/Not Resolved]
  - Nodule [Not Recovered/Not Resolved]
  - Back pain [Not Recovered/Not Resolved]
  - Tuberculosis [Not Recovered/Not Resolved]
